FAERS Safety Report 13857282 (Version 1)
Quarter: 2017Q3

REPORT INFORMATION
  Report Type: Spontaneous
  Country: US (occurrence: US)
  Receive Date: 20170810
  Receipt Date: 20170810
  Transmission Date: 20171127
  Serious: No
  Sender: FDA-Public Use
  Company Number: US-ROCHE-1330446

PATIENT
  Sex: Female

DRUGS (2)
  1. LEVAQUIN [Concomitant]
     Active Substance: LEVOFLOXACIN
     Dosage: X 5 DAYS
     Route: 065
  2. TAMIFLU [Suspect]
     Active Substance: OSELTAMIVIR PHOSPHATE
     Indication: INFLUENZA
     Dosage: EXPIRY DATE: NOV-2016
     Route: 048
     Dates: start: 20140106

REACTIONS (3)
  - Insomnia [Unknown]
  - Restlessness [Not Recovered/Not Resolved]
  - Paraesthesia [Unknown]
